FAERS Safety Report 4417862-4 (Version None)
Quarter: 2004Q2

REPORT INFORMATION
  Report Type: 
  Country: None (occurrence: None)
  Receive Date: 20040621
  Receipt Date: 20040413
  Transmission Date: 20050107
  Serious: Yes (Hospitalization, Other)
  Sender: FDA-Public Use
  Company Number: PHEH2004US03837

PATIENT
  Age: 59 Year
  Sex: Male
  Weight: 73.9 kg

DRUGS (13)
  1. ZOMETA [Suspect]
     Indication: MULTIPLE MYELOMA
     Dosage: 4 MG, QMO , INTRAVENOUS
     Route: 042
     Dates: start: 20011025, end: 20040408
  2. THALIDOMIDE [Concomitant]
  3. DEXAMETHASONE [Concomitant]
  4. CYTOXAN [Concomitant]
  5. MESNA [Concomitant]
  6. ANZEMET (DOLASETRON MESILATE) [Concomitant]
  7. DECADRON [Concomitant]
  8. NEULASTA [Concomitant]
  9. ETOPOSIDE [Concomitant]
  10. CISPLATIN [Concomitant]
  11. PROCRIT (ERYTHROPOIETIN) [Concomitant]
  12. VANCOMYCIN [Concomitant]
  13. INTERFERON [Concomitant]

REACTIONS (3)
  - OSTEONECROSIS [None]
  - SURGERY [None]
  - TOOTH EXTRACTION [None]
